FAERS Safety Report 4368562-0 (Version None)
Quarter: 2004Q2

REPORT INFORMATION
  Report Type: 
  Country: None (occurrence: None)
  Receive Date: 20040528
  Receipt Date: 20040513
  Transmission Date: 20050107
  Serious: Yes (Other)
  Sender: FDA-Public Use
  Company Number: JP-JNJFOC-20031003179

PATIENT
  Age: 67 Year
  Sex: Male

DRUGS (1)
  1. MEBENDAZOLE [Suspect]
     Indication: GIARDIASIS
     Dosage: ORAL
     Route: 048

REACTIONS (1)
  - HAEMATEMESIS [None]
